FAERS Safety Report 21930934 (Version 2)
Quarter: 2023Q1

REPORT INFORMATION
  Report Type: Spontaneous
  Country: US (occurrence: US)
  Receive Date: 20230131
  Receipt Date: 20230226
  Transmission Date: 20230418
  Serious: No
  Sender: FDA-Public Use
  Company Number: US-ALKERMES INC.-ALK-2023-000392

PATIENT
  Age: 36 Year
  Sex: Male

DRUGS (1)
  1. VIVITROL [Suspect]
     Active Substance: NALTREXONE
     Indication: Drug dependence
     Dosage: 380 MILLIGRAM, QMO
     Route: 030
     Dates: start: 20220630

REACTIONS (4)
  - Urine alcohol test positive [Unknown]
  - Drug ineffective [Recovering/Resolving]
  - Refusal of treatment by patient [Unknown]
  - Drug screen positive [Unknown]

NARRATIVE: CASE EVENT DATE: 20230130
